FAERS Safety Report 17359378 (Version 1)
Quarter: 2020Q1

REPORT INFORMATION
  Report Type: Spontaneous
  Country: US (occurrence: US)
  Receive Date: 20200203
  Receipt Date: 20200203
  Transmission Date: 20200409
  Serious: No
  Sender: FDA-Public Use
  Company Number: US-AMGEN-USASP2020012894

PATIENT
  Sex: Male

DRUGS (1)
  1. REPATHA [Suspect]
     Active Substance: EVOLOCUMAB
     Indication: BLOOD CHOLESTEROL INCREASED
     Dosage: UNK
     Route: 065

REACTIONS (10)
  - Eyelid disorder [Unknown]
  - Visual impairment [Unknown]
  - Gastric disorder [Unknown]
  - Fatigue [Unknown]
  - Somnolence [Unknown]
  - Pruritus [Unknown]
  - Feeding disorder [Unknown]
  - Arthralgia [Unknown]
  - Feeling abnormal [Unknown]
  - Peripheral coldness [Unknown]

NARRATIVE: CASE EVENT DATE: 202001
